FAERS Safety Report 6955287-8 (Version None)
Quarter: 2010Q3

REPORT INFORMATION
  Report Type: 
  Country: None (occurrence: None)
  Receive Date: 20100830
  Receipt Date: 20100817
  Transmission Date: 20110219
  Serious: Yes (Hospitalization, Other)
  Sender: FDA-Public Use
  Company Number: PHHY2010JP50321

PATIENT
  Sex: Male

DRUGS (3)
  1. TEGRETOL [Suspect]
     Indication: EPILEPSY
     Dosage: 350 MG, DAIILY
     Route: 048
     Dates: start: 20090427, end: 20100722
  2. MAGNESIUM OXIDE [Concomitant]
     Dosage: UNK
     Route: 048
  3. SOLU-MEDROL [Concomitant]

REACTIONS (6)
  - BRAIN NEOPLASM [None]
  - CONDITION AGGRAVATED [None]
  - DRUG ERUPTION [None]
  - ORAL DISORDER [None]
  - PIGMENTATION DISORDER [None]
  - STOMATITIS [None]
